FAERS Safety Report 4380557-X (Version None)
Quarter: 2004Q2

REPORT INFORMATION
  Report Type: 
  Country: None (occurrence: None)
  Receive Date: 20040615
  Receipt Date: 20031021
  Transmission Date: 20050107
  Serious: Yes (Other)
  Sender: FDA-Public Use
  Company Number: 2003US005586

PATIENT
  Age: 57 Year
  Sex: Female

DRUGS (3)
  1. PROGRAF [Suspect]
     Indication: LUNG TRANSPLANT
  2. RAPAMUNE [Concomitant]
  3. PREDNISONE TAB [Concomitant]

REACTIONS (2)
  - LUNG DISORDER [None]
  - RENAL FAILURE [None]
